FAERS Safety Report 11058113 (Version 1)
Quarter: 2015Q2

REPORT INFORMATION
  Report Type: Spontaneous
  Country: US (occurrence: None)
  Receive Date: 20150421
  Receipt Date: 20150421
  Transmission Date: 20150821
  Serious: Yes (Other)
  Sender: FDA-Public Use
  Company Number: 2015SA040912

PATIENT
  Age: 44 Year
  Sex: Male
  Weight: 139 kg

DRUGS (3)
  1. LANTUS SOLOSTAR [Suspect]
     Active Substance: INSULIN GLARGINE
     Indication: TYPE 2 DIABETES MELLITUS
     Dosage: 60 UNITS(S), TWICE A DAY; UNKNOWN
  2. PENICILLIN [Concomitant]
     Active Substance: PENICILLIN
  3. SOLOSTAR [Concomitant]
     Active Substance: DEVICE

REACTIONS (3)
  - Gallbladder disorder [None]
  - Product contamination physical [None]
  - Drug administration error [None]

NARRATIVE: CASE EVENT DATE: 201503
